FAERS Safety Report 6944528-9 (Version None)
Quarter: 2010Q3

REPORT INFORMATION
  Report Type: 
  Country: None (occurrence: None)
  Receive Date: 20100827
  Receipt Date: 20100823
  Transmission Date: 20110219
  Serious: Yes (Other)
  Sender: FDA-Public Use
  Company Number: GB-PFIZER INC-2010087528

PATIENT
  Age: 78 Year
  Sex: Female
  Weight: 45 kg

DRUGS (7)
  1. LIPITOR [Suspect]
     Indication: MYOCARDIAL ISCHAEMIA
     Dosage: 80 MG, UNK
     Route: 048
     Dates: start: 20080708, end: 20100416
  2. LIPITOR [Suspect]
     Dosage: 40 MG, UNK
  3. METFORMIN [Concomitant]
     Dosage: 500 MG, 1X/DAY
     Route: 048
  4. ACETYLSALICYLIC ACID [Concomitant]
     Dosage: 75 MG, 1X/DAY
     Route: 048
  5. RAMIPRIL [Concomitant]
     Dosage: 2.5 MG, 1X/DAY
     Route: 048
  6. BISOPROLOL [Concomitant]
     Dosage: 2.5 MG, 1X/DAY
     Route: 048
  7. PAROXETINE [Concomitant]
     Dosage: 30 MG, 1X/DAY
     Route: 048

REACTIONS (4)
  - FATIGUE [None]
  - MALAISE [None]
  - MUSCLE ATROPHY [None]
  - WEIGHT DECREASED [None]
